FAERS Safety Report 4377207-5 (Version None)
Quarter: 2004Q2

REPORT INFORMATION
  Report Type: 
  Country: None (occurrence: None)
  Receive Date: 20040609
  Receipt Date: 20040303
  Transmission Date: 20050107
  Serious: No
  Sender: FDA-Public Use
  Company Number: 2003168274US

PATIENT
  Age: 75 Year
  Sex: Female
  Weight: 54.4 kg

DRUGS (2)
  1. BEXTRA [Suspect]
     Indication: ARTHRITIS
     Dosage: 1 TABLET DAILY, ORAL
     Route: 048
     Dates: start: 20030501, end: 20030501
  2. CATAPRES [Concomitant]

REACTIONS (3)
  - LIVER DISORDER [None]
  - MUSCLE CRAMP [None]
  - RESTLESS LEGS SYNDROME [None]
